FAERS Safety Report 18536704 (Version 1)
Quarter: 2020Q4

REPORT INFORMATION
  Report Type: Spontaneous
  Country: CZ (occurrence: CZ)
  Receive Date: 20201124
  Receipt Date: 20201124
  Transmission Date: 20210114
  Serious: Yes (Other)
  Sender: FDA-Public Use
  Company Number: CZ-SHILPA MEDICARE LIMITED-SML-CZ-2020-00652

PATIENT
  Age: 32 Year
  Sex: Female

DRUGS (4)
  1. CAPECITABINE, UNKNOWN [Suspect]
     Active Substance: CAPECITABINE
     Indication: TRIPLE NEGATIVE BREAST CANCER
     Route: 048
     Dates: start: 201904
  2. FORTECORTIN [Concomitant]
     Active Substance: DEXAMETHASONE
     Indication: PRODUCT USED FOR UNKNOWN INDICATION
     Dosage: 1/2 DAILY
     Route: 065
  3. ATEZOLIZUMAB. [Concomitant]
     Active Substance: ATEZOLIZUMAB
     Indication: TRIPLE NEGATIVE BREAST CANCER
     Route: 065
     Dates: start: 202003, end: 202006
  4. NAB-PACLITAXEL [Concomitant]
     Active Substance: PACLITAXEL
     Indication: TRIPLE NEGATIVE BREAST CANCER
     Dosage: D1,8,15 FOR A TOTAL OF 3 CYCLES
     Route: 065
     Dates: start: 202003, end: 202006

REACTIONS (2)
  - Neutropenia [Unknown]
  - Salmonellosis [Unknown]
